FAERS Safety Report 6310328-6 (Version None)
Quarter: 2009Q3

REPORT INFORMATION
  Report Type: 
  Country: None (occurrence: None)
  Receive Date: 20090814
  Receipt Date: 20090807
  Transmission Date: 20100115
  Serious: Yes (Other)
  Sender: FDA-Public Use
  Company Number: BR-ABBOTT-09P-020-0587358-00

PATIENT
  Sex: Male
  Weight: 50 kg

DRUGS (3)
  1. HUMIRA [Suspect]
     Indication: JUVENILE ARTHRITIS
     Route: 058
     Dates: start: 20080701
  2. ARCOXIA [Concomitant]
     Indication: PAIN
     Dosage: 1 TABLET WHEN IT IS NECESSARY
     Route: 048
     Dates: start: 20010101
  3. METHOTREXATE [Concomitant]
     Indication: DRUG USE FOR UNKNOWN INDICATION

REACTIONS (8)
  - BLOOD CHOLESTEROL INCREASED [None]
  - DYSPNOEA [None]
  - INSOMNIA [None]
  - JOINT ANKYLOSIS [None]
  - JOINT STIFFNESS [None]
  - MASS [None]
  - PRURITUS [None]
  - SKIN INDURATION [None]
